FAERS Safety Report 8100611-6 (Version None)
Quarter: 2012Q1

REPORT INFORMATION
  Report Type: 
  Country: None (occurrence: None)
  Receive Date: 20120131
  Receipt Date: 20120124
  Transmission Date: 20120608
  Serious: Yes (Hospitalization, Other)
  Sender: FDA-Public Use
  Company Number: BR-ABBOTT-12P-020-0896947-00

PATIENT
  Sex: Male
  Weight: 94 kg

DRUGS (3)
  1. HUMIRA [Suspect]
     Indication: RHEUMATOID ARTHRITIS
     Route: 058
  2. PREDNISONE TAB [Concomitant]
     Indication: ARTHRITIS
     Route: 048
  3. LEFLUNOMIDE [Concomitant]
     Indication: ARTHRITIS
     Route: 048

REACTIONS (3)
  - FATIGUE [None]
  - INFARCTION [None]
  - CHEST PAIN [None]
